FAERS Safety Report 9787158 (Version 1)
Quarter: 2013Q4

REPORT INFORMATION
  Report Type: Spontaneous
  Country: GB (occurrence: GB)
  Receive Date: 20131228
  Receipt Date: 20131228
  Transmission Date: 20140711
  Serious: Yes (Hospitalization, Other)
  Sender: FDA-Public Use
  Company Number: GB-TEVA-452670ISR

PATIENT
  Age: 60 Year
  Sex: Male

DRUGS (2)
  1. LOSARTAN [Suspect]
     Indication: HYPERTENSION
     Route: 048
     Dates: start: 201310, end: 201311
  2. WARFARIN [Concomitant]

REACTIONS (1)
  - Dyspnoea [Recovering/Resolving]
